FAERS Safety Report 5103222-X (Version None)
Quarter: 2006Q3

REPORT INFORMATION
  Report Type: 
  Country: None (occurrence: None)
  Receive Date: 20060911
  Receipt Date: 20060911
  Transmission Date: 20061208
  Serious: Yes (Hospitalization)
  Sender: FDA-Public Use
  Company Number: None

PATIENT
  Sex: Male
  Weight: 105.2345 kg

DRUGS (2)
  1. DOCETAXEL [Suspect]
     Indication: LARYNGEAL CANCER
     Dosage: 40 MG /M2 WEEKLY X2 THEN REST 1 WEEK IV INFUSION
     Route: 042
     Dates: start: 20060810, end: 20060830
  2. BORTEZOMIB [Suspect]
     Dosage: 1.6 MG/M2 WEEKLY X2 THEN REST 1 WEEK IV PUSH
     Route: 042
     Dates: start: 20060808, end: 20060826

REACTIONS (3)
  - DIARRHOEA [None]
  - NAUSEA [None]
  - VOMITING [None]
